FAERS Safety Report 5290727-4 (Version None)
Quarter: 2007Q2

REPORT INFORMATION
  Report Type: 
  Country: None (occurrence: None)
  Receive Date: 20070405
  Receipt Date: 20070405
  Transmission Date: 20071010
  Serious: Yes (Hospitalization)
  Sender: FDA-Public Use
  Company Number: None

PATIENT
  Age: 65 Year
  Sex: Male
  Weight: 71.9 kg

DRUGS (2)
  1. DOXAZOSIN MESYLATE [Suspect]
     Indication: BENIGN PROSTATIC HYPERPLASIA
     Dosage: 2 MG QD PO
     Route: 048
  2. LOTREL [Suspect]
     Indication: HYPERTENSION
     Dosage: 10 MG/ 20 MG QD PO
     Route: 048

REACTIONS (4)
  - BRADYCARDIA [None]
  - DIZZINESS [None]
  - HYPOTENSION [None]
  - PRESYNCOPE [None]
